FAERS Safety Report 6469511-1 (Version None)
Quarter: 2009Q4

REPORT INFORMATION
  Report Type: 
  Country: None (occurrence: None)
  Receive Date: 20091203
  Receipt Date: 20091202
  Transmission Date: 20100525
  Serious: Yes (Hospitalization)
  Sender: FDA-Public Use
  Company Number: FR-PFIZER INC-2009302979

PATIENT
  Age: 82 Year
  Sex: Female

DRUGS (20)
  1. CELEBREX [Suspect]
     Indication: JOINT INJURY
     Dosage: 200 MG, 20 DAYS/MONTH
     Route: 048
     Dates: start: 20090711, end: 20090727
  2. ALDACTONE [Concomitant]
     Dosage: 25 MG, 1X/DAY
     Route: 048
     Dates: end: 20090727
  3. DEPAMIDE [Concomitant]
     Dosage: 3 DF, 1X/DAY
     Dates: end: 20090727
  4. CORTANCYL [Concomitant]
     Dosage: 5 MG, 2X/DAY
     Route: 048
  5. LEVOTHYROXINE SODIUM [Concomitant]
     Dosage: D1
     Route: 048
  6. LEVOTHYROXINE SODIUM [Concomitant]
     Dosage: D2
     Route: 048
  7. LASILIX [Concomitant]
     Dosage: 40 MG, 1X/DAY
     Route: 048
  8. ATACAND [Concomitant]
     Dosage: UNK
  9. DEROXAT [Concomitant]
     Dosage: UNK
     Dates: end: 20090727
  10. KARDEGIC [Concomitant]
     Dosage: 75 MG, 1X/DAY
     Route: 048
  11. XALATAN [Concomitant]
  12. EUPHYTOSE [Concomitant]
     Dosage: UNK
     Dates: start: 20090502, end: 20090716
  13. LEXOMIL [Concomitant]
     Dosage: UNK
     Dates: start: 20090711, end: 20090726
  14. NEXIUM [Concomitant]
     Dosage: UNK
     Dates: start: 20090716, end: 20090727
  15. STILNOX [Concomitant]
     Dosage: UNK
     Dates: start: 20090716
  16. NITRODERM [Concomitant]
     Dosage: 5 MG, 1X/DAY
     Route: 062
     Dates: start: 20090716
  17. DI-ANTALVIC [Concomitant]
     Dosage: 2 DF, 3X/DAY
     Dates: start: 20090716, end: 20090727
  18. AZOPT [Concomitant]
     Dosage: UNK
     Dates: start: 20090716
  19. TIORFAN [Concomitant]
     Dosage: UNK
     Dates: start: 20090716
  20. SPASFON [Concomitant]
     Dosage: UNK
     Dates: start: 20090716

REACTIONS (2)
  - ACUTE RESPIRATORY FAILURE [None]
  - CARDIAC FAILURE [None]
